FAERS Safety Report 10431201 (Version 2)
Quarter: 2014Q3

REPORT INFORMATION
  Report Type: Spontaneous
  Country: US (occurrence: US)
  Receive Date: 20140904
  Receipt Date: 20140904
  Transmission Date: 20150326
  Serious: Yes (Other)
  Sender: FDA-Public Use
  Company Number: PHHY2014US107046

PATIENT
  Sex: Male

DRUGS (3)
  1. ACETYLSALICYLIC ACID [Suspect]
     Active Substance: ASPIRIN
     Dosage: UNK UKN, UNK
  2. MORPHINE [Suspect]
     Active Substance: MORPHINE
     Dosage: UNK UKN, UNK
     Route: 037
  3. BACLOFEN INTRATHECAL [Suspect]
     Active Substance: BACLOFEN
     Indication: MUSCLE SPASTICITY
     Dosage: UNK UKN, UNK
     Route: 037

REACTIONS (5)
  - Implant site extravasation [Recovered/Resolved]
  - Implant site haematoma [Recovered/Resolved]
  - Implant site erythema [Recovered/Resolved]
  - Implant site haemorrhage [Recovered/Resolved]
  - Depressed level of consciousness [Recovered/Resolved]
